FAERS Safety Report 9871808 (Version 3)
Quarter: 2014Q1

REPORT INFORMATION
  Report Type: Report from Study
  Country: JP (occurrence: JP)
  Receive Date: 20140205
  Receipt Date: 20140318
  Transmission Date: 20141002
  Serious: Yes (Other)
  Sender: FDA-Public Use
  Company Number: JP-TAKEDA-2014TUS000246

PATIENT
  Sex: 0

DRUGS (13)
  1. FEBURIC [Suspect]
     Indication: HYPERURICAEMIA
     Dosage: 10 MG, QD
     Route: 048
     Dates: start: 20121130, end: 20130530
  2. SUNRYTHM [Suspect]
     Indication: ATRIAL FIBRILLATION
     Dosage: 150 MG, QD
     Route: 048
     Dates: start: 20130321
  3. XARELTO [Suspect]
     Indication: ATRIAL FIBRILLATION
     Dosage: 15 MG, QD
     Route: 048
     Dates: start: 20130321
  4. LASIX                              /00032601/ [Concomitant]
     Indication: CARDIAC FAILURE
     Dosage: 120 MG, QD
     Route: 048
     Dates: start: 20120607
  5. LASIX                              /00032601/ [Concomitant]
     Indication: PLEURAL EFFUSION
  6. ALDACTONE A [Concomitant]
     Indication: CARDIAC FAILURE
     Dosage: 50 MG, QD
     Route: 048
     Dates: start: 20120607
  7. ALDACTONE A [Concomitant]
     Indication: PLEURAL EFFUSION
  8. OMEPRAL                            /00661201/ [Concomitant]
     Indication: GASTROOESOPHAGEAL REFLUX DISEASE
     Dosage: 10 MG, QD
     Route: 048
     Dates: start: 20121015
  9. MAINTATE [Concomitant]
     Indication: CARDIAC FAILURE
     Dosage: 0.625 MG, QD
     Route: 048
     Dates: start: 20121117
  10. DERMOVATE [Concomitant]
     Indication: RASH
     Dosage: UNK
     Route: 061
     Dates: start: 20130510
  11. PROPETO [Concomitant]
     Indication: RASH
     Dosage: UNK
     Route: 061
     Dates: start: 20130510, end: 20130620
  12. ALLEGRA [Concomitant]
     Indication: RASH
     Dosage: 120 MG, QD
     Route: 048
     Dates: start: 20130510, end: 20130620
  13. ANTEBATE [Concomitant]
     Indication: RASH
     Dosage: UNK
     Route: 061
     Dates: start: 20130510, end: 20130620

REACTIONS (4)
  - Oesophageal carcinoma recurrent [Recovering/Resolving]
  - Rash [Recovering/Resolving]
  - Liver function test abnormal [Recovered/Resolved]
  - Atrial fibrillation [Recovering/Resolving]
